FAERS Safety Report 9648923 (Version 1)
Quarter: 2013Q4

REPORT INFORMATION
  Report Type: Spontaneous
  Country: CA (occurrence: CA)
  Receive Date: 20131028
  Receipt Date: 20131028
  Transmission Date: 20140711
  Serious: Yes (Death)
  Sender: FDA-Public Use
  Company Number: CA-SA-2013SA107789

PATIENT
  Age: 76 Year
  Sex: Male

DRUGS (2)
  1. ELIGARD [Suspect]
     Indication: PROSTATE CANCER
     Dosage: FREQUENCY-EVERY 3 MONTHS
     Route: 058
     Dates: start: 20120418, end: 20131002
  2. CASODEX [Concomitant]
     Indication: PROSTATE CANCER
     Route: 048
     Dates: end: 201303

REACTIONS (1)
  - Leukaemia [Fatal]
